FAERS Safety Report 9956087 (Version 1)
Quarter: 2014Q1

REPORT INFORMATION
  Report Type: Report from Study
  Country: US (occurrence: US)
  Receive Date: 20140304
  Receipt Date: 20140304
  Transmission Date: 20141002
  Serious: No
  Sender: FDA-Public Use
  Company Number: US-ABBVIE-13P-163-1090023-00

PATIENT
  Age: 21 Year
  Sex: Male

DRUGS (1)
  1. HUMIRA [Suspect]
     Indication: CROHN^S DISEASE
     Dosage: REMAINING 80MG TO BE ASAP
     Dates: start: 20130311, end: 20130311

REACTIONS (2)
  - Loss of consciousness [Recovered/Resolved]
  - Fear of injection [Unknown]
